FAERS Safety Report 13611265 (Version 1)
Quarter: 2017Q2

REPORT INFORMATION
  Report Type: Spontaneous
  Country: US (occurrence: US)
  Receive Date: 20170604
  Receipt Date: 20170604
  Transmission Date: 20170830
  Serious: Yes (Disabling)
  Sender: FDA-Public Use
  Company Number: None

PATIENT
  Age: 66 Year
  Sex: Female
  Weight: 52.2 kg

DRUGS (3)
  1. TEMAZAPAM 15 MG [Suspect]
     Active Substance: TEMAZEPAM
     Indication: INSOMNIA
     Dosage: AT BEDTIME
     Route: 048
     Dates: start: 20170601, end: 20170603
  2. DOXEPIN [Concomitant]
     Active Substance: DOXEPIN
  3. CRESTOR [Concomitant]
     Active Substance: ROSUVASTATIN CALCIUM

REACTIONS (2)
  - Sleep disorder [None]
  - Headache [None]

NARRATIVE: CASE EVENT DATE: 20170601
